FAERS Safety Report 8149876 (Version 3)
Quarter: 2012Q4

REPORT INFORMATION
  Report Type: 
  Country: US (occurrence: US)
  Receive Date: 20110922
  Receipt Date: 20121005
  Transmission Date: 20130627
  Serious: Yes (Other)
  Sender: FDA-Public Use
  Company Number: US-ASTRAZENECA-2010SE35848

PATIENT
  Age: 52 Year
  Sex: Female

DRUGS (1)
  1. SEROQUEL [Suspect]
     Route: 048

REACTIONS (7)
  - Convulsion [Unknown]
  - Fear [Unknown]
  - Feeling abnormal [Unknown]
  - Pain [Unknown]
  - Mental disorder [Unknown]
  - Weight increased [Unknown]
  - Drug dose omission [Unknown]
